FAERS Safety Report 5830527-7 (Version None)
Quarter: 2008Q3

REPORT INFORMATION
  Report Type: 
  Country: None (occurrence: None)
  Receive Date: 20080801
  Receipt Date: 20080331
  Transmission Date: 20090109
  Serious: No
  Sender: FDA-Public Use
  Company Number: US-BRISTOL-MYERS SQUIBB COMPANY-13827266

PATIENT
  Age: 71 Year
  Sex: Female
  Weight: 62 kg

DRUGS (13)
  1. COUMADIN [Suspect]
     Indication: ATRIAL FIBRILLATION
     Dosage: 7.5 MILLIGRAM/DAY FOR 5 DAYS AND 5 MILLIGRAMS/DAY FOR 2 DAYS. 10 MILLIGRAMS ON 28-MAR-2008.
     Route: 048
     Dates: start: 20020101
  2. COUMADIN [Suspect]
     Indication: MITRAL VALVE PROLAPSE
     Dosage: 7.5 MILLIGRAM/DAY FOR 5 DAYS AND 5 MILLIGRAMS/DAY FOR 2 DAYS. 10 MILLIGRAMS ON 28-MAR-2008.
     Route: 048
     Dates: start: 20020101
  3. COUMADIN [Suspect]
     Indication: CARDIAC PACEMAKER INSERTION
     Dosage: 7.5 MILLIGRAM/DAY FOR 5 DAYS AND 5 MILLIGRAMS/DAY FOR 2 DAYS. 10 MILLIGRAMS ON 28-MAR-2008.
     Route: 048
     Dates: start: 20020101
  4. SYNTHROID [Concomitant]
  5. FOSAMAX [Concomitant]
  6. PREMARIN [Concomitant]
  7. LIPITOR [Concomitant]
  8. BUSPAR [Concomitant]
  9. BENTYL [Concomitant]
  10. CITRACAL [Concomitant]
  11. VITAMIN D [Concomitant]
  12. MULTI-VITAMIN [Concomitant]
  13. AMOXICILLIN [Concomitant]

REACTIONS (2)
  - HEADACHE [None]
  - INTERNATIONAL NORMALISED RATIO DECREASED [None]
